FAERS Safety Report 16246858 (Version 1)
Quarter: 2019Q2

REPORT INFORMATION
  Report Type: Spontaneous
  Country: SE (occurrence: SE)
  Receive Date: 20190427
  Receipt Date: 20190427
  Transmission Date: 20190711
  Serious: Yes (Hospitalization)
  Sender: FDA-Public Use
  Company Number: SE-ACCORD-124249

PATIENT
  Age: 46 Year
  Sex: Female

DRUGS (17)
  1. FLUOXETINE [Suspect]
     Active Substance: FLUOXETINE HYDROCHLORIDE
     Indication: SCHIZOAFFECTIVE DISORDER DEPRESSIVE TYPE
     Dosage: 20 MG 2 X 1
     Route: 048
     Dates: start: 20180104
  2. CLOZAPINE ACTAVIS [Suspect]
     Active Substance: CLOZAPINE
     Indication: SCHIZOAFFECTIVE DISORDER DEPRESSIVE TYPE
     Dosage: 25 MG 2 AT 20
     Route: 048
     Dates: start: 20180703, end: 20190118
  3. ACETYLCYSTEINE. [Concomitant]
     Active Substance: ACETYLCYSTEINE
  4. ESOMEPRAZOLE/ESOMEPRAZOLE MAGNESIUM/ESOMEPRAZOLE SODIUM [Concomitant]
  5. DEPO-PROVERA [Concomitant]
     Active Substance: MEDROXYPROGESTERONE ACETATE
  6. HALDOL [Concomitant]
     Active Substance: HALOPERIDOL
  7. ALPRAZOLAM. [Concomitant]
     Active Substance: ALPRAZOLAM
  8. CLOZAPINE ACCORD [Suspect]
     Active Substance: CLOZAPINE
     Indication: SCHIZOAFFECTIVE DISORDER DEPRESSIVE TYPE
     Dosage: STRENGTH 100 MG, 100 MG 2+2
     Route: 048
     Dates: start: 20190128
  9. ZOPICLONE [Concomitant]
     Active Substance: ZOPICLONE
  10. SIMVASTATIN. [Concomitant]
     Active Substance: SIMVASTATIN
  11. PARGITAN [Concomitant]
     Active Substance: TRIHEXYPHENIDYL HYDROCHLORIDE
  12. TEMESTA [Concomitant]
  13. IMPORTAL EX-LAX [Concomitant]
  14. EGAZIL [Concomitant]
     Active Substance: HYOSCYAMINE SULFATE
  15. METFORMIN [Concomitant]
     Active Substance: METFORMIN HYDROCHLORIDE
  16. PREGABALIN. [Concomitant]
     Active Substance: PREGABALIN
  17. CLOZAPINE SANDOZ [Suspect]
     Active Substance: CLOZAPINE
     Indication: SCHIZOAFFECTIVE DISORDER DEPRESSIVE TYPE
     Dosage: 100 MG 2+3, ALSO TAKEN FROM 03-JAN-2018 TO 03-JAN-2018, FROM 04-JUL-2018 TO 28-JAN-2019
     Dates: start: 20180120, end: 20180121

REACTIONS (2)
  - Balance disorder [Unknown]
  - Dizziness [Unknown]

NARRATIVE: CASE EVENT DATE: 20190128
